FAERS Safety Report 4626941-8 (Version None)
Quarter: 2005Q2

REPORT INFORMATION
  Report Type: 
  Country: None (occurrence: None)
  Receive Date: 20050405
  Receipt Date: 20050322
  Transmission Date: 20051028
  Serious: Yes (Hospitalization)
  Sender: FDA-Public Use
  Company Number: FR-JNJFOC-20050400060

PATIENT
  Age: 63 Year
  Sex: Male

DRUGS (6)
  1. TOPALGIC [Suspect]
     Indication: DRUG USE FOR UNKNOWN INDICATION
     Route: 049
  2. ZACNAN [Suspect]
     Indication: DRUG USE FOR UNKNOWN INDICATION
     Route: 049
  3. VANCOMYCIN HCL [Suspect]
     Route: 042
  4. VANCOMYCIN HCL [Suspect]
     Indication: DRUG USE FOR UNKNOWN INDICATION
     Route: 042
  5. TAZOCILLINE [Concomitant]
     Route: 042
  6. TAZOCILLINE [Concomitant]
     Route: 042

REACTIONS (1)
  - NEUTROPENIA [None]
